FAERS Safety Report 14187724 (Version 2)
Quarter: 2017Q4

REPORT INFORMATION
  Report Type: Spontaneous
  Country: CN (occurrence: CN)
  Receive Date: 20171114
  Receipt Date: 20171123
  Transmission Date: 20180321
  Serious: No
  Sender: FDA-Public Use
  Company Number: CN-ARALEZ PHARMACEUTICALS R+D INC.-2017-ARA-001068

PATIENT
  Age: 79 Year
  Sex: Female

DRUGS (9)
  1. METOPROLOL SUCCINATE. [Suspect]
     Active Substance: METOPROLOL SUCCINATE
     Dosage: 11.875 MG, QD
     Route: 048
     Dates: start: 20171017, end: 20171018
  2. LACIDIPINE [Concomitant]
     Active Substance: LACIDIPINE
     Indication: PRODUCT USED FOR UNKNOWN INDICATION
     Dosage: UNK
     Route: 065
  3. METOPROLOL SUCCINATE. [Suspect]
     Active Substance: METOPROLOL SUCCINATE
     Dosage: 11.875 MG, QD
     Route: 048
     Dates: end: 20171014
  4. NIFEDIPINE. [Concomitant]
     Active Substance: NIFEDIPINE
     Indication: PRODUCT USED FOR UNKNOWN INDICATION
     Dosage: UNK
     Route: 065
  5. METOPROLOL SUCCINATE. [Suspect]
     Active Substance: METOPROLOL SUCCINATE
     Indication: HYPERTENSION
     Dosage: 47.5 MG, QD
     Route: 048
  6. METOPROLOL SUCCINATE. [Suspect]
     Active Substance: METOPROLOL SUCCINATE
     Dosage: 11.875 MG, QD
     Route: 048
     Dates: start: 20171015, end: 20171016
  7. BETALOC                            /00376902/ [Suspect]
     Active Substance: METOPROLOL TARTRATE
     Indication: PRODUCT USED FOR UNKNOWN INDICATION
     Dosage: UNK
     Route: 048
  8. METOPROLOL SUCCINATE. [Suspect]
     Active Substance: METOPROLOL SUCCINATE
     Dosage: 11.875 MG, QD
     Route: 048
  9. METOPROLOL SUCCINATE. [Suspect]
     Active Substance: METOPROLOL SUCCINATE
     Indication: EXTRASYSTOLES
     Dosage: 23.75 MG, QD
     Route: 048

REACTIONS (13)
  - Hypertension [Unknown]
  - Withdrawal syndrome [Unknown]
  - Arrhythmia [Unknown]
  - Bradycardia [Unknown]
  - Hypotension [Unknown]
  - Palpitations [Not Recovered/Not Resolved]
  - Emotional disorder [Unknown]
  - Angina pectoris [Unknown]
  - Extrasystoles [Unknown]
  - Anxiety disorder [Unknown]
  - Dyspnoea [Not Recovered/Not Resolved]
  - Myocardial ischaemia [Unknown]
  - Heart rate increased [Unknown]

NARRATIVE: CASE EVENT DATE: 2016
